FAERS Safety Report 5635688-0 (Version None)
Quarter: 2008Q1

REPORT INFORMATION
  Report Type: 
  Country: None (occurrence: None)
  Receive Date: 20080220
  Receipt Date: 20080207
  Transmission Date: 20080703
  Serious: Yes (Death, Hospitalization, Other)
  Sender: FDA-Public Use
  Company Number: CERZ-11987

PATIENT
  Age: 16 Year
  Sex: Male
  Weight: 40 kg

DRUGS (1)
  1. CEREZYME [Suspect]
     Indication: GAUCHER'S DISEASE
     Dosage: 35 U/KG, ONCE, INTRAVENOUS; 60 U/KG, Q2W, INTRAVENOUS
     Route: 042

REACTIONS (7)
  - ASCITES [None]
  - ASPIRATION PLEURAL CAVITY [None]
  - GENERALISED OEDEMA [None]
  - HEPATOCELLULAR INJURY [None]
  - HYPOALBUMINAEMIA [None]
  - PERICARDIAL EFFUSION [None]
  - PLEURAL EFFUSION [None]
